FAERS Safety Report 24467821 (Version 1)
Quarter: 2024Q4

REPORT INFORMATION
  Report Type: Spontaneous
  Country: US (occurrence: US)
  Receive Date: 20241018
  Receipt Date: 20241018
  Transmission Date: 20250114
  Serious: No
  Sender: Phathom Pharmaceuticals
  Company Number: US-PHATHOM PHARMACEUTICALS INC.-2024PHT00593

PATIENT
  Sex: Male

DRUGS (3)
  1. VOQUEZNA [Suspect]
     Active Substance: VONOPRAZAN FUMARATE
     Dosage: 20 MG
     Route: 048
  2. HERBALS [Suspect]
     Active Substance: HERBALS
  3. CAFFEINE [Suspect]
     Active Substance: CAFFEINE
     Route: 048

REACTIONS (2)
  - Joint swelling [Unknown]
  - Peripheral swelling [Unknown]
